FAERS Safety Report 24223205 (Version 4)
Quarter: 2024Q4

REPORT INFORMATION
  Report Type: Spontaneous
  Country: US (occurrence: US)
  Receive Date: 20240819
  Receipt Date: 20241119
  Transmission Date: 20250115
  Serious: No
  Sender: DR REDDYS
  Company Number: US-E2BLSMVVAL-SPO/USA/24/0011599

PATIENT
  Age: 50 Year
  Sex: Female

DRUGS (1)
  1. LENALIDOMIDE [Suspect]
     Active Substance: LENALIDOMIDE
     Indication: Plasma cell myeloma
     Dosage: 7.5 MILLIGRAM(S) (10 MILLIGRAM(S), 21 IN 28 DAY)
     Route: 065

REACTIONS (1)
  - Human chorionic gonadotropin increased [Unknown]
